FAERS Safety Report 12338481 (Version 1)
Quarter: 2016Q2

REPORT INFORMATION
  Report Type: Report from Study
  Country: PK (occurrence: PK)
  Receive Date: 20160505
  Receipt Date: 20160505
  Transmission Date: 20160815
  Serious: Yes (Hospitalization)
  Sender: FDA-Public Use
  Company Number: PK-INCYTE CORPORATION-2016IN002437

PATIENT
  Age: 53 Year
  Sex: Female
  Weight: 52 kg

DRUGS (1)
  1. JAKAFI [Suspect]
     Active Substance: RUXOLITINIB
     Indication: MYELOFIBROSIS
     Dosage: 15 MG, QD
     Route: 048
     Dates: start: 20141207, end: 20160419

REACTIONS (4)
  - Lethargy [Unknown]
  - Splenomegaly [Unknown]
  - Chronic kidney disease [Unknown]
  - Dysuria [Unknown]

NARRATIVE: CASE EVENT DATE: 20160419
